FAERS Safety Report 25362177 (Version 1)
Quarter: 2025Q2

REPORT INFORMATION
  Report Type: Spontaneous
  Country: IT (occurrence: None)
  Receive Date: 20250524
  Receipt Date: 20250524
  Transmission Date: 20250716
  Serious: Yes (Disabling)
  Sender: FDA-CTU
  Company Number: None

PATIENT
  Age: 24 Year
  Sex: Female
  Weight: 58 kg

DRUGS (9)
  1. FLUVOXAMINE MALEATE [Suspect]
     Active Substance: FLUVOXAMINE MALEATE
     Indication: Depression
     Dates: start: 20210531, end: 20220306
  2. OMEGA 3 [Concomitant]
     Active Substance: CAPSAICIN
  3. b12 [Concomitant]
  4. INOSITOL [Concomitant]
     Active Substance: INOSITOL
  5. IODINE [Concomitant]
     Active Substance: IODINE
  6. Aurum [Concomitant]
  7. Tetralysal [Concomitant]
  8. ARIPIPRAZOLE [Suspect]
     Active Substance: ARIPIPRAZOLE
  9. VORTIOXETINE [Suspect]
     Active Substance: VORTIOXETINE

REACTIONS (8)
  - Nausea [None]
  - Tremor [None]
  - Asthenia [None]
  - Sexual dysfunction [None]
  - Libido decreased [None]
  - Sexual dysfunction [None]
  - Attention deficit hyperactivity disorder [None]
  - Autism spectrum disorder [None]

NARRATIVE: CASE EVENT DATE: 20210531
